FAERS Safety Report 6871019-6 (Version None)
Quarter: 2010Q3

REPORT INFORMATION
  Report Type: 
  Country: None (occurrence: None)
  Receive Date: 20100721
  Receipt Date: 20100705
  Transmission Date: 20110219
  Serious: Yes (Hospitalization)
  Sender: FDA-Public Use
  Company Number: JP-SOLVAY-00310003555

PATIENT
  Age: 25915 Day
  Sex: Male

DRUGS (10)
  1. LUVOX [Suspect]
     Indication: DEPRESSION
     Dosage: 50 MILLIGRAM(S), ORAL, 75 MILLIGRAM(S), ORAL
     Route: 048
     Dates: start: 20091211, end: 20100114
  2. LUVOX [Suspect]
     Indication: DEPRESSION
     Dosage: 50 MILLIGRAM(S), ORAL, 75 MILLIGRAM(S), ORAL
     Route: 048
     Dates: start: 20100115
  3. LIPITOR [Concomitant]
  4. PLAVIX [Concomitant]
  5. ARICEPT [Concomitant]
  6. MAGNESIUM OXIDE (MAGNESIUM OXIDE) [Concomitant]
  7. PAROTIN (SALIVARY GLAND HORMONE) [Concomitant]
  8. HALCION [Concomitant]
  9. CAPTOPRIL [Concomitant]
  10. MUCODYNE (CARBOCISTEINE) [Concomitant]

REACTIONS (8)
  - BLOOD CHLORIDE DECREASED [None]
  - BLOOD POTASSIUM INCREASED [None]
  - CONVULSION [None]
  - DEPRESSED LEVEL OF CONSCIOUSNESS [None]
  - HAEMATOCRIT DECREASED [None]
  - HAEMOGLOBIN DECREASED [None]
  - HYPERCHOLESTEROLAEMIA [None]
  - RED BLOOD CELL COUNT DECREASED [None]
